FAERS Safety Report 5509791-X (Version None)
Quarter: 2007Q4

REPORT INFORMATION
  Report Type: 
  Country: None (occurrence: None)
  Receive Date: 20071107
  Receipt Date: 20071107
  Transmission Date: 20080405
  Serious: Yes (Hospitalization)
  Sender: FDA-Public Use
  Company Number: None

PATIENT
  Age: 64 Year
  Sex: Male

DRUGS (1)
  1. INSULIN [Suspect]
     Indication: DIABETES MELLITUS
     Dosage: 55UNITS BID SQ
     Route: 058
     Dates: start: 20070413, end: 20070807

REACTIONS (2)
  - CHEST PAIN [None]
  - HYPOGLYCAEMIA [None]
